FAERS Safety Report 16792775 (Version 6)
Quarter: 2020Q3

REPORT INFORMATION
  Report Type: Report from Study
  Country: BR (occurrence: BR)
  Receive Date: 20190910
  Receipt Date: 20200827
  Transmission Date: 20201102
  Serious: Yes (Other)
  Sender: FDA-Public Use
  Company Number: PHHY2019BR205471

PATIENT
  Age: 75 Year
  Sex: Female

DRUGS (4)
  1. ENTRESTO [Suspect]
     Active Substance: SACUBITRIL\VALSARTAN
     Indication: CARDIAC FAILURE
     Dosage: 1 DF(SACUBITRIL 24 MG/ VALSARTAN 26 MG), Q12H
     Route: 065
     Dates: start: 20190810
  2. ENTRESTO [Suspect]
     Active Substance: SACUBITRIL\VALSARTAN
     Indication: HYPERTENSION
     Dosage: 50 MG, UNKNOWN (24/26 MG)
     Route: 065
  3. ENTRESTO [Suspect]
     Active Substance: SACUBITRIL\VALSARTAN
     Dosage: 100 MG (49/51 MG), UNKNOWN
     Route: 065
  4. ENTRESTO [Suspect]
     Active Substance: SACUBITRIL\VALSARTAN
     Indication: BLOOD PRESSURE ABNORMAL
     Dosage: 1 DF(SACUBITRIL 24 MG/ VALSARTAN 26 MG), Q12H
     Route: 065

REACTIONS (14)
  - Tremor [Unknown]
  - Respiratory rate increased [Unknown]
  - Drug ineffective [Not Recovered/Not Resolved]
  - Heart rate increased [Unknown]
  - Hypotension [Not Recovered/Not Resolved]
  - Blood pressure abnormal [Not Recovered/Not Resolved]
  - Blood pressure abnormal [Recovered/Resolved]
  - Cardiac disorder [Unknown]
  - Blood pressure abnormal [Recovered/Resolved]
  - Blood pressure increased [Recovered/Resolved]
  - Hypertension [Recovered/Resolved]
  - Insomnia [Unknown]
  - Cardiomegaly [Unknown]
  - Blood pressure abnormal [Recovered/Resolved]

NARRATIVE: CASE EVENT DATE: 20190810
